FAERS Safety Report 9435131 (Version 1)
Quarter: 2013Q3

REPORT INFORMATION
  Report Type: Spontaneous
  Country: GB (occurrence: None)
  Receive Date: 20130730
  Receipt Date: 20130730
  Transmission Date: 20140515
  Serious: Yes (Life-Threatening, Hospitalization)
  Sender: FDA-Public Use
  Company Number: GER/UKI/13/0032697

PATIENT
  Age: 39 Year
  Sex: Female
  Weight: 69.85 kg

DRUGS (6)
  1. QUETIAPINE [Suspect]
     Indication: DEPRESSION
     Route: 048
     Dates: start: 201106, end: 201304
  2. QUETIAPINE [Suspect]
     Indication: OBSESSIVE-COMPULSIVE DISORDER
     Route: 048
     Dates: start: 201106, end: 201304
  3. ARIPIPRAZOLE [Suspect]
     Indication: DEPRESSION
     Dates: start: 200805, end: 201306
  4. ARIPIPRAZOLE [Suspect]
     Indication: OBSESSIVE-COMPULSIVE DISORDER
     Dates: start: 200805, end: 201306
  5. LITHIUM CARBONATE [Concomitant]
  6. SERTRALINE [Concomitant]

REACTIONS (1)
  - Pulmonary embolism [None]
